FAERS Safety Report 19000585 (Version 1)
Quarter: 2021Q1

REPORT INFORMATION
  Report Type: Spontaneous
  Country: US (occurrence: US)
  Receive Date: 20210311
  Receipt Date: 20210311
  Transmission Date: 20210420
  Serious: Yes (Other)
  Sender: FDA-Public Use
  Company Number: None

PATIENT
  Age: 78 Year
  Sex: Male

DRUGS (1)
  1. COSENTYX [Suspect]
     Active Substance: SECUKINUMAB
     Indication: PSORIASIS
     Dosage: 2 PENS (300MG) Q4WK SQ
     Route: 058
     Dates: start: 20180112

REACTIONS (1)
  - Renal cancer [None]

NARRATIVE: CASE EVENT DATE: 20210305
